FAERS Safety Report 19573201 (Version 1)
Quarter: 2021Q3

REPORT INFORMATION
  Report Type: Other
  Country: CN (occurrence: CN)
  Receive Date: 20210716
  Receipt Date: 20210716
  Transmission Date: 20211014
  Serious: Yes (Other)
  Sender: FDA-Public Use
  Company Number: CN-ROCHE-2871329

PATIENT

DRUGS (2)
  1. BEVACIZUMAB. [Suspect]
     Active Substance: BEVACIZUMAB
     Indication: MALIGNANT GLIOMA
     Dosage: 5 MG/KG INTRAVENOUS INFUSION EVERY 2 WEEKS OR 5?7.5 MG/KG INTRAVENOUS INFUSION EVERY 3 WEEKS
     Route: 042
  2. TEMOZOLOMIDE. [Suspect]
     Active Substance: TEMOZOLOMIDE
     Indication: MALIGNANT GLIOMA
     Dosage: 150?200 MG/M2 ORALLY, D1?5, OR A DOSE?INTENSIVE REGIMEN OF 100 MG/M2 ORALLY, D1?7, D15?21, 4 WEEKS A
     Route: 048

REACTIONS (5)
  - Constipation [Unknown]
  - Diarrhoea [Unknown]
  - Hypertension [Unknown]
  - Myelosuppression [Unknown]
  - Proteinuria [Unknown]
